FAERS Safety Report 5719884-X (Version None)
Quarter: 2008Q2

REPORT INFORMATION
  Report Type: 
  Country: None (occurrence: None)
  Receive Date: 20080428
  Receipt Date: 20070426
  Transmission Date: 20081010
  Serious: No
  Sender: FDA-Public Use
  Company Number: A0648867A

PATIENT
  Age: 34 Year
  Sex: Female

DRUGS (3)
  1. ZOFRAN [Suspect]
     Indication: HYPEREMESIS GRAVIDARUM
     Dosage: 8MG THREE TIMES PER DAY
     Route: 048
     Dates: start: 20070301
  2. ONDANSETRON HCL [Suspect]
     Indication: HYPEREMESIS GRAVIDARUM
     Route: 065
  3. NO CONCURRENT MEDICATION [Concomitant]

REACTIONS (2)
  - DRUG EXPOSURE DURING PREGNANCY [None]
  - DRUG INEFFECTIVE [None]
